FAERS Safety Report 6253367-6 (Version None)
Quarter: 2009Q3

REPORT INFORMATION
  Report Type: 
  Country: None (occurrence: None)
  Receive Date: 20090701
  Receipt Date: 20090626
  Transmission Date: 20100115
  Serious: Yes (Other)
  Sender: FDA-Public Use
  Company Number: PHEH2009US06730

PATIENT
  Sex: Female

DRUGS (7)
  1. GLEEVEC [Suspect]
     Indication: CHRONIC MYELOID LEUKAEMIA
     Dosage: 400 MG, QD
     Route: 048
     Dates: start: 20040801
  2. BENADRYL [Concomitant]
  3. PREDNISONE [Concomitant]
  4. SALAGEN [Concomitant]
  5. ASPIRIN [Concomitant]
  6. ZYRTEC [Concomitant]
     Dosage: 10 MG, UNK
  7. VITAMINS [Concomitant]

REACTIONS (3)
  - FATIGUE [None]
  - HYPOTHYROIDISM [None]
  - RASH [None]
